FAERS Safety Report 9224160 (Version 1)
Quarter: 2013Q1

REPORT INFORMATION
  Report Type: Spontaneous
  Country: US (occurrence: None)
  Receive Date: 20120914
  Receipt Date: 20120914
  Transmission Date: 20140127
  Serious: No
  Sender: FDA-Public Use
  Company Number: JPI-P-019647

PATIENT
  Age: 59 Year
  Sex: Male
  Weight: 95.26 kg

DRUGS (6)
  1. XYREM [Suspect]
     Indication: SLEEP DISORDER
     Route: 048
     Dates: start: 200502
  2. AMLODIPINE BESYLATE [Concomitant]
  3. VENLAFAXINE HYDROCHLORIDE [Concomitant]
  4. LISINOPRIL W/HYDROCHLOROTHIAZIDE [Concomitant]
  5. PRAMIPEXOLE DIHYDROCHLORIDE [Concomitant]
  6. AMPHETAMINE, DEXTROAMPHETAMIN MIXED SALTS [Concomitant]

REACTIONS (1)
  - Sinus disorder [None]
